FAERS Safety Report 5746994-3 (Version None)
Quarter: 2008Q2

REPORT INFORMATION
  Report Type: 
  Country: None (occurrence: None)
  Receive Date: 20080522
  Receipt Date: 20080516
  Transmission Date: 20081010
  Serious: Yes (Hospitalization)
  Sender: FDA-Public Use
  Company Number: FR-PFIZER INC-2008042933

PATIENT
  Sex: Male

DRUGS (8)
  1. TAHOR [Suspect]
     Indication: HYPERCHOLESTEROLAEMIA
     Route: 048
  2. VALPROIC ACID [Suspect]
     Indication: ACUTE MYELOID LEUKAEMIA
     Dosage: TEXT:35 MG/KG
     Route: 048
  3. ANTINEOPLASTIC AGENTS [Suspect]
     Indication: ACUTE MYELOID LEUKAEMIA
     Dosage: TEXT:75 MG/M2
     Route: 058
  4. VESANOID [Suspect]
     Indication: ACUTE MYELOID LEUKAEMIA
     Route: 048
  5. ALLOPURINOL [Suspect]
     Indication: HYPERURICAEMIA
     Route: 048
  6. PERMIXON [Concomitant]
     Indication: BENIGN PROSTATIC HYPERPLASIA
     Route: 048
  7. DIHYDROERGOCRISTINE MESILATE [Concomitant]
     Route: 048
  8. FOLIC ACID [Concomitant]
     Route: 048

REACTIONS (1)
  - TYPE 1 DIABETES MELLITUS [None]
